FAERS Safety Report 17906906 (Version 4)
Quarter: 2022Q2

REPORT INFORMATION
  Report Type: Report from Study
  Country: CA (occurrence: CA)
  Receive Date: 20200616
  Receipt Date: 20220603
  Transmission Date: 20220721
  Serious: Yes (Hospitalization, Other)
  Sender: FDA-Public Use
  Company Number: CA-ABBVIE-20K-028-3446461-00

PATIENT
  Sex: Male

DRUGS (2)
  1. HUMIRA [Suspect]
     Active Substance: ADALIMUMAB
     Indication: Crohn^s disease
     Route: 058
     Dates: start: 20200224
  2. FLAGYL [Suspect]
     Active Substance: METRONIDAZOLE\METRONIDAZOLE HYDROCHLORIDE
     Indication: Product used for unknown indication
     Route: 065

REACTIONS (15)
  - Deep vein thrombosis postoperative [Unknown]
  - Post procedural pulmonary embolism [Unknown]
  - Stoma creation [Not Recovered/Not Resolved]
  - Intestinal anastomosis [Not Recovered/Not Resolved]
  - Crohn^s disease [Unknown]
  - Bile acid malabsorption [Not Recovered/Not Resolved]
  - Post procedural discharge [Unknown]
  - Anal fistula [Not Recovered/Not Resolved]
  - Postoperative abscess [Unknown]
  - Anal fistula [Not Recovered/Not Resolved]
  - Poor venous access [Unknown]
  - Intestinal perforation [Recovered/Resolved]
  - Diarrhoea [Unknown]
  - Nausea [Unknown]
  - Folliculitis [Not Recovered/Not Resolved]

NARRATIVE: CASE EVENT DATE: 20200101
